FAERS Safety Report 7809525 (Version 2)
Quarter: 2013Q3

REPORT INFORMATION
  Report Type: Spontaneous
  Country: AT (occurrence: AT)
  Receive Date: 20110211
  Receipt Date: 20130709
  Transmission Date: 20140515
  Serious: Yes (Hospitalization)
  Sender: FDA-Public Use
  Company Number: AT-ASTRAZENECA-2011SE05727

PATIENT
  Age: 22 Year
  Sex: Female
  Weight: 52.9 kg

DRUGS (8)
  1. SEROQUEL [Suspect]
     Route: 048
     Dates: start: 20101123
  2. SEROQUEL [Suspect]
     Dosage: 300 MG
     Route: 048
  3. MIRTABENE [Suspect]
     Route: 048
     Dates: start: 20101206, end: 20101208
  4. VENLAFAXINE HYDROCHLORIDE [Suspect]
     Route: 048
     Dates: start: 20101124
  5. LAMICTAL [Concomitant]
     Route: 048
  6. TEMESTA [Concomitant]
     Route: 048
     Dates: start: 20101128, end: 20101207
  7. TEMESTA [Concomitant]
     Route: 048
     Dates: start: 20101208, end: 20101221
  8. CONCOR [Concomitant]
     Route: 048
     Dates: start: 20101130

REACTIONS (3)
  - Dyssomnia [Recovered/Resolved]
  - Restless legs syndrome [Recovered/Resolved]
  - Pain in extremity [Recovered/Resolved]
